FAERS Safety Report 9867953 (Version 3)
Quarter: 2014Q2

REPORT INFORMATION
  Report Type: Spontaneous
  Country: US (occurrence: US)
  Receive Date: 20140204
  Receipt Date: 20140430
  Transmission Date: 20141212
  Serious: Yes (Other)
  Sender: FDA-Public Use
  Company Number: US-PFIZER INC-2014029760

PATIENT
  Age: 63 Year
  Sex: Male

DRUGS (5)
  1. HYDROCHLOROTHIAZIDE [Suspect]
     Dosage: UNK
  2. XALKORI [Suspect]
     Dosage: 250 MG, UNK
     Dates: start: 20131024
  3. XALKORI [Suspect]
     Dosage: 250 MG, 2X/DAY
     Route: 048
     Dates: start: 201312
  4. ATACAND [Suspect]
     Dosage: UNK
  5. HYDROCODONE [Suspect]
     Dosage: UNK

REACTIONS (4)
  - Renal impairment [Unknown]
  - Fatigue [Unknown]
  - Nausea [Unknown]
  - Constipation [Unknown]
